FAERS Safety Report 22028611 (Version 1)
Quarter: 2023Q1

REPORT INFORMATION
  Report Type: Report from Study
  Country: US (occurrence: US)
  Receive Date: 20230223
  Receipt Date: 20230223
  Transmission Date: 20230418
  Serious: Yes (Hospitalization)
  Sender: FDA-Public Use
  Company Number: US-JNJFOC-20210346668

PATIENT
  Age: 84 Year
  Sex: Male
  Weight: 80 kg

DRUGS (3)
  1. IBRUTINIB [Suspect]
     Active Substance: IBRUTINIB
     Indication: Mantle cell lymphoma
     Route: 048
     Dates: start: 20191205
  2. ABEXINOSTAT [Concomitant]
     Active Substance: ABEXINOSTAT
     Indication: Mantle cell lymphoma
     Dosage: TWICE DAILY ON DAYS 1-5; 15-19
     Route: 048
     Dates: start: 20191205, end: 20210319
  3. ABEXINOSTAT [Concomitant]
     Active Substance: ABEXINOSTAT
     Indication: Mantle cell lymphoma
     Dosage: TWICE DAILY ON DAYS 1-5; 15-19
     Route: 048
     Dates: start: 20191205

REACTIONS (4)
  - Febrile neutropenia [Recovered/Resolved]
  - Neutropenia [Recovered/Resolved]
  - Fatigue [Recovered/Resolved]
  - Neutrophil count decreased [Recovered/Resolved]

NARRATIVE: CASE EVENT DATE: 20210320
